FAERS Safety Report 11331570 (Version 1)
Quarter: 2015Q3

REPORT INFORMATION
  Report Type: Spontaneous
  Country: US (occurrence: US)
  Receive Date: 20150803
  Receipt Date: 20150803
  Transmission Date: 20151125
  Serious: Yes (Hospitalization, Congenital Anomaly, Other)
  Sender: FDA-Public Use
  Company Number: US-APOTEX-2015AP007901

PATIENT
  Age: 10 Month
  Sex: Female
  Weight: 7 kg

DRUGS (2)
  1. PAXIL [Suspect]
     Active Substance: PAROXETINE HYDROCHLORIDE
     Indication: DEPRESSION
     Dosage: UNK
     Route: 064
     Dates: start: 2001
  2. FLINTSTONES [Concomitant]
     Indication: PRODUCT USED FOR UNKNOWN INDICATION
     Route: 065

REACTIONS (7)
  - Congenital cardiovascular anomaly [Unknown]
  - Dextrocardia [Unknown]
  - Failure to thrive [Unknown]
  - Foetal exposure during pregnancy [Unknown]
  - Atrial septal defect [Unknown]
  - Respiratory tract malformation [Unknown]
  - Pulmonary hypoplasia [Unknown]

NARRATIVE: CASE EVENT DATE: 20080331
